FAERS Safety Report 13541536 (Version 1)
Quarter: 2017Q2

REPORT INFORMATION
  Report Type: Report from Study
  Country: US (occurrence: US)
  Receive Date: 20170512
  Receipt Date: 20170512
  Transmission Date: 20170830
  Serious: Yes (Other)
  Sender: FDA-Public Use
  Company Number: US-PFIZER INC-2017200127

PATIENT

DRUGS (2)
  1. RAVPAL-PEG [Suspect]
     Active Substance: PEGVALIASE
     Indication: PHENYLKETONURIA
     Dosage: 0.001 MG/KG, SINGLE
     Route: 058
  2. MEDROXYPROGESTERONE ACETATE. [Suspect]
     Active Substance: MEDROXYPROGESTERONE ACETATE
     Indication: CONTRACEPTION
     Dosage: UNK
     Route: 030

REACTIONS (1)
  - Hypersensitivity [Recovered/Resolved]
